FAERS Safety Report 23055559 (Version 1)
Quarter: 2023Q4

REPORT INFORMATION
  Report Type: Report from Study
  Country: US (occurrence: US)
  Receive Date: 20231011
  Receipt Date: 20231011
  Transmission Date: 20240109
  Serious: Yes (Other)
  Sender: FDA-Public Use
  Company Number: US-AGIOS-2310US03496

PATIENT
  Sex: Male

DRUGS (3)
  1. MITAPIVAT [Suspect]
     Active Substance: MITAPIVAT
     Indication: Pyruvate kinase deficiency anaemia
     Dosage: UNK
     Route: 065
     Dates: start: 20230830
  2. MITAPIVAT [Suspect]
     Active Substance: MITAPIVAT
     Dosage: ONE PILL A DAY
     Route: 065
     Dates: start: 20230917
  3. MITAPIVAT [Suspect]
     Active Substance: MITAPIVAT
     Dosage: 2 PILLS A DAY
     Route: 065
     Dates: start: 20230930

REACTIONS (2)
  - Atrial fibrillation [Unknown]
  - Pruritus [Unknown]
